FAERS Safety Report 14013932 (Version 1)
Quarter: 2017Q3

REPORT INFORMATION
  Report Type: Spontaneous
  Country: GB (occurrence: GB)
  Receive Date: 20170926
  Receipt Date: 20170926
  Transmission Date: 20171128
  Serious: Yes (Other)
  Sender: FDA-Public Use
  Company Number: GB-MYLANLABS-2017M1058388

PATIENT
  Age: 48 Year
  Sex: Male

DRUGS (9)
  1. DOXYCYCLINE. [Suspect]
     Active Substance: DOXYCYCLINE
     Indication: PRODUCT USED FOR UNKNOWN INDICATION
     Dosage: 1 NOW THEN 1 DAILY.
     Route: 048
     Dates: start: 20170817, end: 20170821
  2. GAVISCON ADVANCE [Concomitant]
     Active Substance: POTASSIUM BICARBONATE\SODIUM ALGINATE
     Dosage: 5-10ML
     Route: 048
  3. SILDENAFIL. [Concomitant]
     Active Substance: SILDENAFIL
     Dosage: AS DIRECTED.
  4. AMOXICILLIN. [Concomitant]
     Active Substance: AMOXICILLIN
     Route: 048
     Dates: start: 20170811, end: 20170818
  5. CHLOROQUINE PHOSPHATE W/PROGUANIL HYDROCHLORI [Concomitant]
     Indication: MALARIA PROPHYLAXIS
  6. INDAPAMIDE. [Concomitant]
     Active Substance: INDAPAMIDE
     Dosage: MORNING.
     Route: 048
  7. FINASTERIDE. [Concomitant]
     Active Substance: FINASTERIDE
     Route: 048
  8. TAMSULOSIN [Concomitant]
     Active Substance: TAMSULOSIN
  9. RAMIPRIL. [Concomitant]
     Active Substance: RAMIPRIL
     Route: 048

REACTIONS (2)
  - Swollen tongue [Recovered/Resolved]
  - Vomiting [Recovered/Resolved]

NARRATIVE: CASE EVENT DATE: 20170817
